FAERS Safety Report 9262349 (Version 1)
Quarter: 2013Q2

REPORT INFORMATION
  Report Type: Spontaneous
  Country: US (occurrence: None)
  Receive Date: 20130425
  Receipt Date: 20130425
  Transmission Date: 20140414
  Serious: Yes (Life-Threatening, Hospitalization)
  Sender: FDA-Public Use
  Company Number: None

PATIENT
  Age: 58 Year
  Sex: Female
  Weight: 77.2 kg

DRUGS (24)
  1. OLANZAPINE PAMOATE [Suspect]
     Indication: SCHIZOPHRENIA
     Route: 030
     Dates: start: 20120117, end: 20121018
  2. ACETAMINOPHEN [Concomitant]
  3. MYLANTA [Concomitant]
  4. ASPIRIN EC [Concomitant]
  5. ATORVASTATIN [Concomitant]
  6. CARBAMAZEPINE [Concomitant]
  7. CLONAZEPAM [Concomitant]
  8. CLONIDINE [Concomitant]
  9. DOCUSATE SOD [Concomitant]
  10. FERROUS SULFATE [Concomitant]
  11. FUROSEMIDE [Concomitant]
  12. INSULIN ASPART SLIDING SCALE [Concomitant]
  13. LACTULOSE [Concomitant]
  14. LISINOPRIL [Concomitant]
  15. MOM [Concomitant]
  16. METFORMIN [Concomitant]
  17. NITROGLYCERIN [Concomitant]
  18. COREG CR [Concomitant]
  19. PANTOPRAZOLE [Concomitant]
  20. HYPOTEARS [Concomitant]
  21. ANUSOL OINTMENT [Concomitant]
  22. SODIUM CHLORIDE NASAL SPRAY [Concomitant]
  23. VERAPAMIL SR [Concomitant]
  24. ZYPREXA RELPREVV [Concomitant]

REACTIONS (10)
  - Post-injection delirium sedation syndrome [None]
  - Dehydration [None]
  - Fluid intake reduced [None]
  - Hypophagia [None]
  - Blood pressure decreased [None]
  - Lethargy [None]
  - Aggression [None]
  - Agitation [None]
  - Constipation [None]
  - Psychotic disorder [None]
